FAERS Safety Report 8087864-8 (Version None)
Quarter: 2012Q1

REPORT INFORMATION
  Report Type: 
  Country: None (occurrence: None)
  Receive Date: 20120128
  Receipt Date: 20110502
  Transmission Date: 20120608
  Serious: No
  Sender: FDA-Public Use
  Company Number: US-ABBOTT-11P-163-0723106-00

PATIENT
  Sex: Female

DRUGS (5)
  1. IMURAN [Concomitant]
     Indication: CROHN'S DISEASE
  2. TRAMADOL HCL [Concomitant]
     Indication: PAIN
     Dosage: EVERY 4HOURS
  3. PHENERGAN [Concomitant]
     Indication: NAUSEA
     Dosage: 25MG EVERY 4 HOURS PRN
  4. PROTONIX [Concomitant]
     Indication: CROHN'S DISEASE
  5. HUMIRA [Suspect]
     Indication: CROHN'S DISEASE
     Dates: start: 20100601

REACTIONS (1)
  - INJECTION SITE PAIN [None]
